FAERS Safety Report 15492246 (Version 1)
Quarter: 2018Q4

REPORT INFORMATION
  Report Type: Spontaneous
  Country: US (occurrence: US)
  Receive Date: 20181012
  Receipt Date: 20181012
  Transmission Date: 20190205
  Serious: Yes (Hospitalization)
  Sender: FDA-Public Use
  Company Number: US-ACCORD-073159

PATIENT
  Age: 52 Year
  Sex: Male

DRUGS (5)
  1. OLANZAPINE. [Suspect]
     Active Substance: OLANZAPINE
     Indication: HUNTINGTON^S DISEASE
     Dosage: 7.5 MG NIGHTLY
  2. FLUCONAZOLE. [Suspect]
     Active Substance: FLUCONAZOLE
     Indication: ONYCHOMYCOSIS
     Dosage: 200 MG WEEKLY
  3. LISDEXAMFETAMINE DIMESYLATE [Suspect]
     Active Substance: LISDEXAMFETAMINE DIMESYLATE
     Indication: HUNTINGTON^S DISEASE
     Dosage: 40 MG DAILY
  4. CLONAZEPAM. [Suspect]
     Active Substance: CLONAZEPAM
     Indication: HUNTINGTON^S DISEASE
     Dosage: REDUCED TO 0.5MG AT BEDTIME ON ?DAY 4, TO 0.25MG AT BEDTIME ON?DAY 8, AND DISCONTINUED ?DAY 12
  5. FLUOXETINE [Suspect]
     Active Substance: FLUOXETINE HYDROCHLORIDE
     Indication: HUNTINGTON^S DISEASE
     Dosage: 60 MG DAILY, REDUCED TO 40MG?DAILY ON DAY 1, TO 20MG DAILY ON DAY 3, AND DISCONTINUED ON 8.

REACTIONS (1)
  - Choreoathetosis [Recovering/Resolving]
